FAERS Safety Report 7526973-6 (Version None)
Quarter: 2011Q2

REPORT INFORMATION
  Report Type: 
  Country: None (occurrence: None)
  Receive Date: 20110606
  Receipt Date: 20040408
  Transmission Date: 20111010
  Serious: Yes (Death)
  Sender: FDA-Public Use
  Company Number: PHHO2004ES00643

PATIENT
  Sex: Female

DRUGS (1)
  1. NEORAL [Suspect]
     Indication: LIVER TRANSPLANT
     Route: 048
     Dates: start: 19950330

REACTIONS (1)
  - DEATH [None]
